FAERS Safety Report 9693542 (Version 1)
Quarter: 2013Q4

REPORT INFORMATION
  Report Type: Spontaneous
  Country: US (occurrence: US)
  Receive Date: 20131118
  Receipt Date: 20131118
  Transmission Date: 20140711
  Serious: Yes (Other)
  Sender: FDA-Public Use
  Company Number: US-GLAXOSMITHKLINE-A1050066A

PATIENT
  Age: 69 Year
  Sex: Female

DRUGS (1)
  1. COREG [Suspect]
     Indication: PRODUCT USED FOR UNKNOWN INDICATION
     Dosage: 20MG UNKNOWN
     Dates: start: 20081216

REACTIONS (4)
  - Multiple sclerosis [Unknown]
  - Memory impairment [Unknown]
  - Dysgraphia [Unknown]
  - Therapy cessation [Unknown]
